FAERS Safety Report 5974929-7 (Version None)
Quarter: 2008Q4

REPORT INFORMATION
  Report Type: 
  Country: None (occurrence: None)
  Receive Date: 20081202
  Receipt Date: 20081127
  Transmission Date: 20090506
  Serious: Yes (Life-Threatening)
  Sender: FDA-Public Use
  Company Number: JP-PFIZER INC-2008100895

PATIENT
  Age: 34 Year
  Sex: Male

DRUGS (3)
  1. ZITHROMAX [Suspect]
     Indication: PHARYNGITIS
     Dosage: DAILY DOSE:500MG
     Route: 048
     Dates: start: 20081127, end: 20081127
  2. LOXONIN [Concomitant]
  3. TRANSAMIN [Concomitant]

REACTIONS (1)
  - ANAPHYLACTIC SHOCK [None]
